FAERS Safety Report 8932543 (Version 2)
Quarter: 2013Q1

REPORT INFORMATION
  Report Type: Spontaneous
  Country: FR (occurrence: None)
  Receive Date: 20121120
  Receipt Date: 20130116
  Transmission Date: 20140127
  Serious: Yes (Hospitalization, Other)
  Sender: FDA-Public Use
  Company Number: 2012CP000146

PATIENT
  Age: 66 Year
  Sex: Male

DRUGS (11)
  1. PERFALGAN [Suspect]
     Dosage: 1 DOSAGE FORM; IV
     Route: 042
     Dates: start: 20120927
  2. MORPHINE [Suspect]
     Route: 042
     Dates: start: 20120927
  3. HEPARIN SODIUM [Suspect]
     Dates: start: 20120927
  4. EUPRESSYL [Suspect]
     Dates: start: 20120927
  5. EXACYL [Suspect]
     Dates: start: 20120927
  6. INEXIUM [Suspect]
     Route: 048
  7. LOXEN [Suspect]
     Dates: start: 20120927, end: 20120928
  8. KEFANDOL [Suspect]
  9. ACUPAN [Suspect]
     Dates: start: 20120927, end: 20120928
  10. ASPEGIC [Suspect]
  11. KEFORAL [Suspect]

REACTIONS (5)
  - Neutropenia [None]
  - Thrombocytopenia [None]
  - White blood cell count decreased [None]
  - Haemoglobin decreased [None]
  - Acute promyelocytic leukaemia [None]
